FAERS Safety Report 15749141 (Version 1)
Quarter: 2018Q4

REPORT INFORMATION
  Report Type: Spontaneous
  Country: NL (occurrence: NL)
  Receive Date: 20181221
  Receipt Date: 20181221
  Transmission Date: 20190205
  Serious: Yes (Other)
  Sender: FDA-Public Use
  Company Number: NL-ALK-ABELLO A/S-2015AA000637

PATIENT

DRUGS (4)
  1. AMOXICILLINE                       /00249602/ [Suspect]
     Active Substance: AMOXICILLIN
     Indication: SINUSITIS
     Dosage: 500 MILLIGRAM
     Route: 048
     Dates: start: 201405
  2. AMOXICILLIN. [Suspect]
     Active Substance: AMOXICILLIN
     Indication: CYSTITIS NONINFECTIVE
     Dosage: 500 MILLIGRAM, UNK
     Route: 048
     Dates: start: 201405, end: 201405
  3. GRAZAX [Suspect]
     Active Substance: PHLEUM PRATENSE POLLEN
     Indication: PRODUCT USED FOR UNKNOWN INDICATION
     Dosage: 75000 SQ-T, UNK
     Dates: start: 20120919, end: 201406
  4. DESOGESTREL W/ETHINYLESTRADIOL [Concomitant]
     Active Substance: DESOGESTREL\ETHINYL ESTRADIOL
     Dosage: UNK
     Route: 048

REACTIONS (7)
  - Rash pruritic [Recovered/Resolved]
  - Throat tightness [Unknown]
  - Renal disorder [Unknown]
  - Swelling of eyelid [Unknown]
  - Rash generalised [Recovered/Resolved]
  - Angioedema [Unknown]
  - Pyrexia [Unknown]

NARRATIVE: CASE EVENT DATE: 2014
